FAERS Safety Report 8846667 (Version 1)
Quarter: 2012Q4

REPORT INFORMATION
  Report Type: 
  Country: FR (occurrence: FR)
  Receive Date: 20121017
  Receipt Date: 20121017
  Transmission Date: 20130627
  Serious: Yes (Hospitalization)
  Sender: FDA-Public Use
  Company Number: FR-ROCHE-1005771

PATIENT
  Age: 85 Year
  Sex: Female

DRUGS (4)
  1. ROCEPHINE [Suspect]
     Indication: PRODUCT USED FOR UNKNOWN INDICATION
     Route: 042
     Dates: start: 20110608, end: 20110618
  2. ROCEPHINE [Suspect]
     Route: 042
     Dates: start: 20110620, end: 20110627
  3. AUGMENTIN [Suspect]
     Indication: PRODUCT USED FOR UNKNOWN INDICATION
     Route: 042
     Dates: start: 20110717, end: 20110723
  4. FURADANTIN [Suspect]
     Indication: PRODUCT USED FOR UNKNOWN INDICATION
     Route: 048
     Dates: start: 20110717, end: 20110723

REACTIONS (6)
  - Generalised erythema [Recovered/Resolved]
  - Eosinophilia [Recovered/Resolved]
  - Acute generalised exanthematous pustulosis [Recovered/Resolved]
  - Staphylococcus test positive [None]
  - Clostridium test positive [None]
  - Bacteraemia [None]
